FAERS Safety Report 9674447 (Version 1)
Quarter: 2013Q4

REPORT INFORMATION
  Report Type: Spontaneous
  Country: SE (occurrence: SE)
  Receive Date: 20131107
  Receipt Date: 20131107
  Transmission Date: 20140711
  Serious: Yes (Hospitalization)
  Sender: FDA-Public Use
  Company Number: SE-009507513-1311SWE001770

PATIENT
  Age: 68 Year
  Sex: Male

DRUGS (4)
  1. LOSARTAN POTASSIUM [Suspect]
     Dosage: 50 MG, UNK
     Route: 048
     Dates: start: 20130420, end: 20130927
  2. ALFUZOSIN HYDROCHLORIDE [Concomitant]
  3. TOVIAZ [Concomitant]
     Dosage: 8 MG, UNK
     Route: 048
  4. PRIMPERAN [Concomitant]

REACTIONS (2)
  - Acidosis [Recovered/Resolved]
  - Hyperkalaemia [Recovered/Resolved]
